APPROVED DRUG PRODUCT: METOLAZONE
Active Ingredient: METOLAZONE
Strength: 2.5MG
Dosage Form/Route: TABLET;ORAL
Application: A217563 | Product #001 | TE Code: AB
Applicant: MICRO LABS LTD
Approved: Nov 6, 2024 | RLD: No | RS: No | Type: RX